FAERS Safety Report 9822794 (Version 1)
Quarter: 2014Q1

REPORT INFORMATION
  Report Type: Spontaneous
  Country: CA (occurrence: CA)
  Receive Date: 20140116
  Receipt Date: 20140116
  Transmission Date: 20141002
  Serious: Yes (Other)
  Sender: FDA-Public Use
  Company Number: CA-MERCK-1401CAN005319

PATIENT
  Age: 66 Year
  Sex: Female
  Weight: 70 kg

DRUGS (6)
  1. JANUVIA [Suspect]
     Dosage: 100 MG, 1 EVERY 1 DAY
     Route: 048
  2. COVERSYL (PERINDOPRIL ARGININE) [Concomitant]
     Route: 065
  3. ELTROXIN [Concomitant]
     Route: 065
  4. LITHIUM [Concomitant]
     Route: 065
  5. PULMICORT [Concomitant]
     Route: 065
  6. VENTOLIN (ALBUTEROL) [Concomitant]
     Route: 065

REACTIONS (3)
  - Toxicity to various agents [Unknown]
  - Blood creatinine increased [Unknown]
  - Creatinine renal clearance decreased [Unknown]
